FAERS Safety Report 9551423 (Version 1)
Quarter: 2013Q3

REPORT INFORMATION
  Report Type: Spontaneous
  Country: US (occurrence: US)
  Receive Date: 20130925
  Receipt Date: 20130925
  Transmission Date: 20140515
  Serious: No
  Sender: FDA-Public Use
  Company Number: US-009507513-1309USA010805

PATIENT
  Age: 60 Year
  Sex: Female

DRUGS (2)
  1. EMEND [Suspect]
     Indication: PROPHYLAXIS OF NAUSEA AND VOMITING
     Dosage: UNK, 150 MG OVER UNSPECIFIED PERIOD, INFUSION
     Route: 041
  2. EMEND [Suspect]
     Dosage: UNK, INFUSION
     Route: 041

REACTIONS (1)
  - Rash [Unknown]
